FAERS Safety Report 7605713-6 (Version None)
Quarter: 2011Q3

REPORT INFORMATION
  Report Type: 
  Country: None (occurrence: None)
  Receive Date: 20110713
  Receipt Date: 20110707
  Transmission Date: 20111222
  Serious: Yes (Hospitalization, Other)
  Sender: FDA-Public Use
  Company Number: FR-PFIZER INC-2011157205

PATIENT
  Age: 84 Year
  Sex: Female

DRUGS (13)
  1. LEXOMIL [Concomitant]
  2. PREVISCAN [Concomitant]
  3. MIANSERIN [Concomitant]
  4. DIGOXIN [Suspect]
     Dosage: 0.125 MG, DAILY
     Route: 048
     Dates: end: 20101208
  5. PANTOPRAZOLE [Concomitant]
  6. ATACAND [Concomitant]
     Dosage: UNK
     Dates: end: 20101208
  7. CORDARONE [Suspect]
     Dosage: 100 MG, DAILY
     Route: 048
     Dates: end: 20101208
  8. BISOPROLOL [Suspect]
     Dosage: 5 MG, DAILY
     Route: 048
     Dates: end: 20101208
  9. TRAMADOL HYDROCHLORIDE AND ACETAMINOPHEN [Concomitant]
  10. FUROSEMIDE [Concomitant]
  11. LYRICA [Concomitant]
  12. MORPHINE SULFATE [Concomitant]
     Dosage: UNK
     Dates: start: 20101201, end: 20101208
  13. XALATAN [Concomitant]

REACTIONS (6)
  - RENAL FAILURE ACUTE [None]
  - BRADYCARDIA [None]
  - ATRIAL FIBRILLATION [None]
  - HYPERKALAEMIA [None]
  - CONFUSIONAL STATE [None]
  - SPEECH DISORDER [None]
